FAERS Safety Report 26204511 (Version 1)
Quarter: 2025Q4

REPORT INFORMATION
  Report Type: Spontaneous
  Country: JP (occurrence: JP)
  Receive Date: 20251227
  Receipt Date: 20251227
  Transmission Date: 20260118
  Serious: Yes (Other)
  Sender: GALDERMA
  Company Number: JP-GALDERMA-JP2025018912

PATIENT

DRUGS (11)
  1. NEMOLIZUMAB [Suspect]
     Active Substance: NEMOLIZUMAB
     Indication: Neurodermatitis
     Dosage: 60 MILLIGRAM EVERY 4 WEEKS
     Route: 058
     Dates: start: 20250902, end: 20250902
  2. NEMOLIZUMAB [Suspect]
     Active Substance: NEMOLIZUMAB
     Dosage: 30 MILLIGRAM EVERY 4 WEEKS
     Route: 058
     Dates: start: 20250930, end: 20250930
  3. NEMOLIZUMAB [Suspect]
     Active Substance: NEMOLIZUMAB
     Dosage: 30 MILLIGRAM EVERY 4 WEEKS
     Route: 058
     Dates: start: 20251030, end: 20251030
  4. NEMOLIZUMAB [Suspect]
     Active Substance: NEMOLIZUMAB
     Dosage: 30 MILLIGRAM EVERY 4 WEEKS
     Route: 058
     Dates: start: 20251128
  5. AUGMENTIN [Concomitant]
     Active Substance: AMOXICILLIN\CLAVULANATE POTASSIUM
     Indication: Animal bite
     Dosage: UNK
     Route: 048
     Dates: start: 20250912
  6. KETOTIFEN [Concomitant]
     Active Substance: KETOTIFEN
     Indication: Urticaria chronic
     Dosage: 2 MILLIGRAM
     Route: 048
     Dates: start: 20250604
  7. Jumihaidokuto [Concomitant]
     Indication: Urticaria chronic
     Dosage: 12 DOSAGE FORM
     Route: 048
     Dates: start: 20250604
  8. MEQUITAZINE [Concomitant]
     Active Substance: MEQUITAZINE
     Indication: Urticaria chronic
     Dosage: 3 MILLIGRAM
     Route: 048
     Dates: start: 20250730
  9. DEXAMETHASONE DIPROPIONATE [Concomitant]
     Active Substance: DEXAMETHASONE DIPROPIONATE
     Indication: Urticaria chronic
     Dosage: UNK
     Route: 061
     Dates: start: 20250730
  10. RINDERON VG [Concomitant]
     Active Substance: BETAMETHASONE VALERATE\GENTAMICIN SULFATE
     Indication: Urticaria chronic
     Dosage: UNK
     Route: 061
     Dates: start: 20250604
  11. LOCOID [Concomitant]
     Active Substance: HYDROCORTISONE BUTYRATE
     Indication: Urticaria chronic
     Dosage: UNK
     Route: 061
     Dates: start: 20250604

REACTIONS (4)
  - Erythema multiforme [Not Recovered/Not Resolved]
  - Blister [Not Recovered/Not Resolved]
  - Skin erosion [Unknown]
  - Papule [Unknown]

NARRATIVE: CASE EVENT DATE: 20250101
